FAERS Safety Report 4458496-5 (Version None)
Quarter: 2004Q3

REPORT INFORMATION
  Report Type: 
  Country: None (occurrence: None)
  Receive Date: 20040922
  Receipt Date: 20030804
  Transmission Date: 20050211
  Serious: Yes (Hospitalization)
  Sender: FDA-Public Use
  Company Number: US-SHR-03-005193

PATIENT
  Age: 52 Year
  Sex: Male

DRUGS (11)
  1. BETASERON [Suspect]
     Indication: MULTIPLE SCLEROSIS
     Dosage: 8 MIU, QOD, SUBCUTANEOUS; 4 MIU, EVERY 2D, SUBCUTANEOUS
     Route: 058
     Dates: start: 20030220, end: 20030324
  2. BETASERON [Suspect]
     Indication: MULTIPLE SCLEROSIS
     Dosage: 8 MIU, QOD, SUBCUTANEOUS; 4 MIU, EVERY 2D, SUBCUTANEOUS
     Route: 058
     Dates: start: 20030101
  3. UNSPECIFIED STEROIDS () [Suspect]
     Indication: LUNG INFECTION
     Dates: start: 20030301, end: 20030301
  4. OXYCONTIN [Concomitant]
  5. PERCOCET [Concomitant]
  6. SOMA (CARISPRODOLOL) [Concomitant]
  7. XANAX (CARISPRODOL) [Concomitant]
  8. NEURONTIN [Concomitant]
  9. BACLOFEN [Concomitant]
  10. FUROSEMIDE [Concomitant]
  11. UNSPECIFIED BLOOD PRESSURE MEDICATION [Concomitant]

REACTIONS (5)
  - ARTHRITIS [None]
  - BLOOD GLUCOSE INCREASED [None]
  - LUNG INFECTION [None]
  - MULTIPLE SCLEROSIS [None]
  - PNEUMONIA [None]
